FAERS Safety Report 19509603 (Version 1)
Quarter: 2021Q3

REPORT INFORMATION
  Report Type: Report from Study
  Country: US (occurrence: US)
  Receive Date: 20210708
  Receipt Date: 20210708
  Transmission Date: 20211014
  Serious: Yes (Other)
  Sender: FDA-Public Use
  Company Number: US-BAUSCH-BL-2021-022871

PATIENT
  Age: 70 Year
  Sex: Female

DRUGS (1)
  1. SILIQ [Suspect]
     Active Substance: BRODALUMAB
     Indication: PSORIASIS
     Dosage: 210MG/1.5ML
     Route: 058
     Dates: start: 2019

REACTIONS (2)
  - Limb injury [Unknown]
  - Cellulitis [Unknown]

NARRATIVE: CASE EVENT DATE: 20210620
